FAERS Safety Report 10024019 (Version 1)
Quarter: 2014Q1

REPORT INFORMATION
  Report Type: Spontaneous
  Country: US (occurrence: US)
  Receive Date: 20140320
  Receipt Date: 20140320
  Transmission Date: 20141002
  Serious: No
  Sender: FDA-Public Use
  Company Number: US-BAYER-2014-041500

PATIENT
  Sex: Female

DRUGS (1)
  1. ALEVE CAPLET [Suspect]
     Indication: DYSMENORRHOEA
     Dosage: WITHOUT EATING ANYTHING,

REACTIONS (2)
  - Malaise [Not Recovered/Not Resolved]
  - Vomiting [None]
